FAERS Safety Report 14817648 (Version 4)
Quarter: 2018Q2

REPORT INFORMATION
  Report Type: Report from Study
  Country: US (occurrence: US)
  Receive Date: 20180426
  Receipt Date: 20180628
  Transmission Date: 20180711
  Serious: Yes (Other)
  Sender: FDA-Public Use
  Company Number: US-AMGEN-USASL2018055446

PATIENT
  Age: 55 Year
  Sex: Female

DRUGS (3)
  1. ENBREL [Suspect]
     Active Substance: ETANERCEPT
     Dosage: UNK
     Route: 065
  2. ENBREL [Suspect]
     Active Substance: ETANERCEPT
     Indication: RHEUMATOID ARTHRITIS
     Dosage: 50 MG, QWK
     Route: 065
     Dates: start: 201803
  3. ENBREL [Suspect]
     Active Substance: ETANERCEPT
     Dosage: 50 MG, QWK
     Route: 065

REACTIONS (18)
  - Rhinorrhoea [Not Recovered/Not Resolved]
  - Injection site erythema [Unknown]
  - Erythema [Recovering/Resolving]
  - Injection site pruritus [Unknown]
  - Sinusitis [Recovering/Resolving]
  - Malaise [Unknown]
  - Photosensitivity reaction [Not Recovered/Not Resolved]
  - Swelling [Recovering/Resolving]
  - Pyrexia [Recovering/Resolving]
  - Injection site haemorrhage [Unknown]
  - Wrong technique in product usage process [Unknown]
  - Ocular hyperaemia [Not Recovered/Not Resolved]
  - Nasal congestion [Recovering/Resolving]
  - Decreased appetite [Recovering/Resolving]
  - Rheumatoid arthritis [Unknown]
  - Eye discharge [Recovering/Resolving]
  - Injection site pain [Not Recovered/Not Resolved]
  - Drug dose omission [Unknown]

NARRATIVE: CASE EVENT DATE: 2018
